FAERS Safety Report 15053726 (Version 1)
Quarter: 2018Q2

REPORT INFORMATION
  Report Type: Report from Study
  Country: US (occurrence: US)
  Receive Date: 20180622
  Receipt Date: 20180622
  Transmission Date: 20180711
  Serious: No
  Sender: FDA-Public Use
  Company Number: US-AMGEN-USASL2016039586

PATIENT
  Age: 69 Year
  Sex: Female

DRUGS (2)
  1. NPLATE [Suspect]
     Active Substance: ROMIPLOSTIM
     Dosage: 7
     Route: 065
  2. NPLATE [Suspect]
     Active Substance: ROMIPLOSTIM
     Indication: IMMUNE THROMBOCYTOPENIC PURPURA
     Dosage: UNK
     Route: 065
     Dates: start: 20100101

REACTIONS (5)
  - Platelet count decreased [Unknown]
  - Platelet count abnormal [Unknown]
  - Headache [Recovered/Resolved]
  - Cardiac disorder [Unknown]
  - Thyroid disorder [Unknown]
